FAERS Safety Report 7257977-9 (Version None)
Quarter: 2011Q1

REPORT INFORMATION
  Report Type: 
  Country: None (occurrence: None)
  Receive Date: 20110129
  Receipt Date: 20100610
  Transmission Date: 20110831
  Serious: No
  Sender: FDA-Public Use
  Company Number: US-ABBOTT-10P-163-0650740-00

PATIENT
  Age: 32 Year
  Sex: Female

DRUGS (7)
  1. UNKNOWN MEDICATION [Concomitant]
     Indication: CONTRACEPTION
  2. LEVIBID [Concomitant]
     Indication: CROHN'S DISEASE
  3. PROZAC [Concomitant]
     Indication: DEPRESSION
  4. HUMIRA [Suspect]
     Indication: CROHN'S DISEASE
     Dates: end: 20100524
  5. PREVACID OTC [Concomitant]
     Indication: DYSPEPSIA
  6. FOLIC ACID [Concomitant]
     Indication: CROHN'S DISEASE
  7. PENTASA [Concomitant]
     Indication: CROHN'S DISEASE

REACTIONS (2)
  - FATIGUE [None]
  - SINUSITIS [None]
